FAERS Safety Report 17976787 (Version 1)
Quarter: 2020Q3

REPORT INFORMATION
  Report Type: Spontaneous
  Country: US (occurrence: US)
  Receive Date: 20200703
  Receipt Date: 20200703
  Transmission Date: 20201103
  Serious: No
  Sender: FDA-Public Use
  Company Number: US-LUNDBECK-DKLU3018028

PATIENT
  Age: 47 Year
  Sex: Female

DRUGS (1)
  1. VYEPTI [Suspect]
     Active Substance: EPTINEZUMAB-JJMR
     Indication: MIGRAINE
     Route: 042
     Dates: start: 20200604

REACTIONS (5)
  - Abdominal distension [Unknown]
  - Fluid retention [Unknown]
  - Feeling abnormal [Unknown]
  - Paraesthesia [Unknown]
  - Migraine [Unknown]

NARRATIVE: CASE EVENT DATE: 20200605
